FAERS Safety Report 21210718 (Version 1)
Quarter: 2022Q3

REPORT INFORMATION
  Report Type: Spontaneous
  Country: US (occurrence: US)
  Receive Date: 20220815
  Receipt Date: 20220815
  Transmission Date: 20221026
  Serious: Yes (Other)
  Sender: FDA-Public Use
  Company Number: US-CELGENE-USA-20220108113

PATIENT
  Age: 60 Year
  Sex: Female

DRUGS (4)
  1. REVLIMID [Suspect]
     Active Substance: LENALIDOMIDE
     Indication: Plasma cell myeloma
     Dosage: FREQUENCY TEXT: OTHER
     Route: 048
     Dates: start: 20200521
  2. REVLIMID [Suspect]
     Active Substance: LENALIDOMIDE
     Dosage: FREQUENCY TEXT: OTHER
     Route: 048
     Dates: start: 202108
  3. REVLIMID [Suspect]
     Active Substance: LENALIDOMIDE
     Dosage: FREQUENCY TEXT: OTHER
     Route: 048
     Dates: start: 202201, end: 20220128
  4. POMALYST [Suspect]
     Active Substance: POMALIDOMIDE
     Indication: Plasma cell myeloma
     Dosage: 1-21 DAYS, 7 DAYS OFF
     Route: 048
     Dates: start: 20220201

REACTIONS (4)
  - Therapeutic product effect decreased [Unknown]
  - Light chain disease [Unknown]
  - COVID-19 [Unknown]
  - Thrombosis [Unknown]

NARRATIVE: CASE EVENT DATE: 20220128
